FAERS Safety Report 8203246-X (Version None)
Quarter: 2012Q1

REPORT INFORMATION
  Report Type: 
  Country: None (occurrence: None)
  Receive Date: 20120312
  Receipt Date: 20120306
  Transmission Date: 20120608
  Serious: Yes (Other)
  Sender: FDA-Public Use
  Company Number: JP-ROCHE-1042893

PATIENT
  Sex: Female

DRUGS (2)
  1. VIGAMOX [Concomitant]
     Dates: start: 20090501, end: 20090701
  2. RANIBIZUMAB [Suspect]
     Indication: AGE-RELATED MACULAR DEGENERATION
     Route: 050
     Dates: start: 20090507

REACTIONS (2)
  - VITREOUS HAEMORRHAGE [None]
  - VITREOUS DETACHMENT [None]
